FAERS Safety Report 4500655-7 (Version None)
Quarter: 2004Q4

REPORT INFORMATION
  Report Type: 
  Country: None (occurrence: None)
  Receive Date: 20041112
  Receipt Date: 20041112
  Transmission Date: 20050328
  Serious: Yes (Life-Threatening)
  Sender: FDA-Public Use
  Company Number: None

PATIENT
  Age: 68 Year
  Sex: Male
  Weight: 110.2 kg

DRUGS (20)
  1. K-DUR [Suspect]
     Indication: MINERAL SUPPLEMENTATION
     Dosage: 20 MEG PO BID CHRONIC
     Route: 048
  2. SPIRONOLACTONE [Suspect]
     Indication: DIURETIC THERAPY
     Dosage: 25 MG PO BID CHRONIC
     Route: 048
  3. XALATAN [Concomitant]
  4. METFORMIN [Concomitant]
  5. GLYBURIDE [Concomitant]
  6. LIPITOR [Concomitant]
  7. PRILOSEC [Concomitant]
  8. VASOTEC [Concomitant]
  9. TOPROL-XL [Concomitant]
  10. CARDIZEM CD [Concomitant]
  11. CARDURA [Concomitant]
  12. AVANDIA [Concomitant]
  13. WELLBUTRIN [Concomitant]
  14. ASPIRIN [Concomitant]
  15. MULTIVITAMIN [Concomitant]
  16. VIT C [Concomitant]
  17. VIT E [Concomitant]
  18. SAU PALMETTO [Concomitant]
  19. FISH OIL [Concomitant]
  20. PLAVIX [Concomitant]

REACTIONS (7)
  - ASTHENIA [None]
  - BLOOD POTASSIUM INCREASED [None]
  - ELECTROCARDIOGRAM T WAVE PEAKED [None]
  - HYPOTENSION [None]
  - MOBILITY DECREASED [None]
  - OBSTRUCTION [None]
  - RENAL FAILURE ACUTE [None]
